FAERS Safety Report 14169397 (Version 1)
Quarter: 2017Q4

REPORT INFORMATION
  Report Type: Report from Study
  Country: PK (occurrence: PK)
  Receive Date: 20171108
  Receipt Date: 20171108
  Transmission Date: 20180321
  Serious: Yes (Other)
  Sender: FDA-Public Use
  Company Number: PHHY2017PK162495

PATIENT
  Age: 50 Year
  Sex: Male

DRUGS (2)
  1. CO-DIOVAN [Suspect]
     Active Substance: HYDROCHLOROTHIAZIDE\VALSARTAN
     Indication: HYPERTENSION
     Dosage: 1 DF (HYDROCHLOROTHIAZIDE 12.5MG AND VALSARTAN 160MG), QD
     Route: 048
     Dates: start: 20120101, end: 20171101
  2. EXFORGE HCT [Suspect]
     Active Substance: AMLODIPINE BESYLATE\HYDROCHLOROTHIAZIDE\VALSARTAN
     Indication: HYPERTENSION
     Dosage: 1 DF (AMLODIPINE 5MG, HYDROCHLOROTHIAZIDE 12.5MG AND VALSARTAN 160MG), BID
     Route: 048
     Dates: start: 20120101, end: 20171101

REACTIONS (4)
  - Urine output decreased [Unknown]
  - Intentional overdose [Unknown]
  - Fluid retention [Not Recovered/Not Resolved]
  - Inappropriate schedule of drug administration [Unknown]

NARRATIVE: CASE EVENT DATE: 20120101
